FAERS Safety Report 26125566 (Version 1)
Quarter: 2025Q4

REPORT INFORMATION
  Report Type: Spontaneous
  Country: UA (occurrence: UA)
  Receive Date: 20251205
  Receipt Date: 20251205
  Transmission Date: 20260117
  Serious: Yes (Death)
  Sender: MYLAN
  Company Number: UA-MYLANLABS-2025M1104017

PATIENT
  Age: 55 Year
  Sex: Female

DRUGS (8)
  1. PRETOMANID [Suspect]
     Active Substance: PRETOMANID
     Indication: Tuberculosis
     Dosage: 0.2 GRAM, QD
     Dates: start: 20251018, end: 20251101
  2. PRETOMANID [Suspect]
     Active Substance: PRETOMANID
     Indication: Pulmonary tuberculosis
  3. LINEZOLID [Suspect]
     Active Substance: LINEZOLID
     Indication: Tuberculosis
     Dosage: 0.6 GRAM, QD
     Dates: start: 20251018, end: 20251101
  4. LINEZOLID [Suspect]
     Active Substance: LINEZOLID
     Indication: Pulmonary tuberculosis
  5. BEDAQUILINE [Suspect]
     Active Substance: BEDAQUILINE
     Indication: Tuberculosis
     Dosage: 0.4 GRAM, QD (1 TAB CONTAIN 120.89 MG OF BEDAQUILINE FUMARATE (EQUINT TO 100 MG OF BEDAQUILINE))
     Dates: start: 20251018, end: 20251101
  6. BEDAQUILINE [Suspect]
     Active Substance: BEDAQUILINE
     Indication: Pulmonary tuberculosis
  7. MOXIFLOXACIN [Suspect]
     Active Substance: MOXIFLOXACIN
     Indication: Tuberculosis
     Dosage: 0.4 GRAM, QD (1 TAB CONTAIN MOXIFLOXACIN HYDROCHLORIDE 436.330 MG, EQUINT TO 400 MG OF MOXIFLOXACIN)
     Dates: start: 20251018, end: 20251101
  8. MOXIFLOXACIN [Suspect]
     Active Substance: MOXIFLOXACIN
     Indication: Pulmonary tuberculosis

REACTIONS (1)
  - Death [Fatal]

NARRATIVE: CASE EVENT DATE: 20251101
